FAERS Safety Report 26168769 (Version 1)
Quarter: 2025Q4

REPORT INFORMATION
  Report Type: Spontaneous
  Country: US (occurrence: US)
  Receive Date: 20251217
  Receipt Date: 20251217
  Transmission Date: 20260119
  Serious: No
  Sender: PACIRA
  Company Number: US-ORG100016242-2025000201

PATIENT

DRUGS (4)
  1. EXPAREL [Suspect]
     Active Substance: BUPIVACAINE
     Indication: Product used for unknown indication
     Dosage: QUARTER PERCENT BUPIVACAINE WITH EPINEPHRINE AND SALINE
     Route: 014
  2. BUPIVACAINE HYDROCHLORIDE [Suspect]
     Active Substance: BUPIVACAINE HYDROCHLORIDE
     Indication: Product used for unknown indication
     Dosage: QUARTER PERCENT BUPIVACAINE WITH EPINEPHRINE AND SALINE
     Route: 014
  3. EPINEPHRINE [Suspect]
     Active Substance: EPINEPHRINE
     Indication: Product used for unknown indication
     Dosage: QUARTER PERCENT BUPIVACAINE WITH EPINEPHRINE AND SALINE
     Route: 014
  4. SALINE [Suspect]
     Active Substance: SODIUM CHLORIDE
     Indication: Product used for unknown indication
     Dosage: QUARTER PERCENT BUPIVACAINE WITH EPINEPHRINE AND SALINE
     Route: 014

REACTIONS (2)
  - Off label use [Unknown]
  - Labelled drug-drug interaction medication error [Unknown]
